FAERS Safety Report 5861329-3 (Version None)
Quarter: 2008Q3

REPORT INFORMATION
  Report Type: 
  Country: None (occurrence: None)
  Receive Date: 20080826
  Receipt Date: 20080812
  Transmission Date: 20090109
  Serious: Yes (Death)
  Sender: FDA-Public Use
  Company Number: 2008S1015139

PATIENT
  Age: 37 Year
  Sex: Female

DRUGS (20)
  1. TEMAZEPAM [Suspect]
     Dates: start: 20060701
  2. METHADONE TABLETS (5 MG) [Suspect]
     Indication: PAIN
     Dates: start: 20050601
  3. METHADONE TABLETS (10 MG) [Suspect]
     Indication: PAIN
     Dates: start: 20060706
  4. TRAMADOL HYDROCHLORIDE [Suspect]
     Indication: PAIN
     Dosage: 100 MG; AS NEEDED;
     Dates: start: 20050601
  5. CLONAZEPAM [Suspect]
     Dates: start: 20030101
  6. VENLAFAXINE HYDROCHLORIDE [Suspect]
     Dosage: 300 MG; AT BEDTIME;
     Dates: start: 20030101
  7. HYDROCODONE BITARTRATE AND ACETAMINOPHEN [Suspect]
     Dosage: 7.5 MG; AS NEEDED;, 500 MG; AS NEEDED;
     Dates: start: 20030101
  8. HYDROCODONE BITARTRATE AND ACETAMINOPHEN [Suspect]
     Dosage: 7.5 MG; AS NEEDED;, 500 MG; AS NEEDED;
     Dates: start: 20030101
  9. PROTONIX /01263201/ [Concomitant]
  10. CELEBREX [Concomitant]
  11. SOMA [Concomitant]
  12. AMBIEN [Concomitant]
  13. ALBUTEROL [Concomitant]
  14. MIRALAX [Concomitant]
  15. DETROL LA [Concomitant]
  16. ASPIRIN [Concomitant]
  17. BENICAR [Concomitant]
  18. ADVICOR [Concomitant]
  19. SYNTHROID [Concomitant]
  20. MOBIC [Concomitant]

REACTIONS (10)
  - BLOOD TRIGLYCERIDES INCREASED [None]
  - CARDIOMEGALY [None]
  - DIABETES MELLITUS [None]
  - DRUG TOXICITY [None]
  - HEPATOSPLENOMEGALY [None]
  - HYPERTENSION [None]
  - HYPOTHYROIDISM [None]
  - LUNG NEOPLASM [None]
  - PULMONARY CONGESTION [None]
  - URINARY INCONTINENCE [None]
